FAERS Safety Report 8808546 (Version 1)
Quarter: 2012Q4

REPORT INFORMATION
  Report Type: 
  Country: US (occurrence: US)
  Receive Date: 20120926
  Receipt Date: 20120926
  Transmission Date: 20130627
  Serious: No
  Sender: FDA-Public Use
  Company Number: PHEH2012US018741

PATIENT
  Age: 66 Year
  Sex: Female

DRUGS (9)
  1. TASIGNA [Suspect]
     Indication: CHRONIC MYELOID LEUKAEMIA
     Dosage: 300 mg, BID
     Route: 048
     Dates: start: 20120917
  2. VAGIFEM [Concomitant]
     Dosage: 10 ug, UNK
  3. ALPRAZOLAM [Concomitant]
     Dosage: 25 mg, UNK
  4. HYDROCODONE W/ACETAMINOPHEN [Concomitant]
  5. SINGULAIR [Concomitant]
     Dosage: 10 mg, UNK
  6. RESTASIS [Concomitant]
     Dosage: 0.05 %, UNK
  7. ADVAIR [Concomitant]
  8. PANTOPRAZOLE [Concomitant]
     Dosage: 40 mg, UNK
  9. FEXOFENADINE [Concomitant]
     Dosage: 180 mg, UNK

REACTIONS (1)
  - Dyspepsia [Not Recovered/Not Resolved]
